FAERS Safety Report 8367190-X (Version None)
Quarter: 2012Q1

REPORT INFORMATION
  Report Type: 
  Country: None (occurrence: None)
  Receive Date: 20120323
  Receipt Date: 20110922
  Transmission Date: 20120608
  Serious: Yes (Other)
  Sender: FDA-Public Use
  Company Number: 163-21880-11072591

PATIENT
  Age: 84 Year
  Sex: Female

DRUGS (3)
  1. ASPIRIN [Concomitant]
  2. REVLIMID [Suspect]
     Indication: MYELODYSPLASTIC SYNDROME
     Dosage: 5 MG, DAILY, X28 DAYS, PO, 5 MG, GOD #14, PO
     Route: 048
     Dates: start: 20110713
  3. REVLIMID [Suspect]
     Indication: MYELODYSPLASTIC SYNDROME
     Dosage: 5 MG, DAILY, X28 DAYS, PO, 5 MG, GOD #14, PO
     Route: 048
     Dates: start: 20080124, end: 20110601

REACTIONS (1)
  - WHITE BLOOD CELL COUNT DECREASED [None]
